FAERS Safety Report 15745364 (Version 1)
Quarter: 2018Q4

REPORT INFORMATION
  Report Type: Spontaneous
  Country: DE (occurrence: DE)
  Receive Date: 20181220
  Receipt Date: 20181220
  Transmission Date: 20190205
  Serious: Yes (Other)
  Sender: FDA-Public Use
  Company Number: DE-TEVA-2018-DE-986936

PATIENT
  Sex: Female

DRUGS (1)
  1. DIAZEPAM TROPFEN 10MG/ML [Suspect]
     Active Substance: DIAZEPAM
     Dosage: UNKNOWN MAH AND FORM STRENGTH; 80-100 GTTS USED FOR LONGER TIME PROBABLY
     Route: 048

REACTIONS (1)
  - Drug abuse [Unknown]
